FAERS Safety Report 10185337 (Version 7)
Quarter: 2016Q3

REPORT INFORMATION
  Report Type: Spontaneous
  Country: US (occurrence: US)
  Receive Date: 20140521
  Receipt Date: 20160922
  Transmission Date: 20161108
  Serious: Yes (Death, Hospitalization, Other)
  Sender: FDA-Public Use
  Company Number: US-PFIZER INC-2014137881

PATIENT
  Age: 79 Year
  Sex: Male
  Weight: 75 kg

DRUGS (5)
  1. SUTENT [Suspect]
     Active Substance: SUNITINIB MALATE
     Indication: RENAL CANCER METASTATIC
     Dosage: 50 MG, 1X/DAY
     Dates: start: 20110211
  2. SUTENT [Suspect]
     Active Substance: SUNITINIB MALATE
     Dosage: 37.5 MG, 1X/DAY
     Dates: start: 201401
  3. SUTENT [Suspect]
     Active Substance: SUNITINIB MALATE
     Dosage: 50 MG, CYCLIC (4 WEEKS ON- 2 WEEKS OFF)
     Dates: start: 201102
  4. SUTENT [Suspect]
     Active Substance: SUNITINIB MALATE
     Dosage: 25 MG, 1X/DAY
     Dates: start: 2013
  5. SUTENT [Suspect]
     Active Substance: SUNITINIB MALATE
     Dosage: 37.5 MG, 1X/DAY
     Dates: start: 20120506

REACTIONS (17)
  - Retching [Unknown]
  - Influenza [Unknown]
  - Kidney infection [Unknown]
  - General physical health deterioration [Recovering/Resolving]
  - Pain in extremity [Not Recovered/Not Resolved]
  - Drug intolerance [Unknown]
  - Abdominal hernia [Recovered/Resolved]
  - Polyp [Unknown]
  - Sepsis [Unknown]
  - Decreased appetite [Not Recovered/Not Resolved]
  - Renal cancer metastatic [Fatal]
  - Cerebrovascular accident [Recovering/Resolving]
  - Gait disturbance [Not Recovered/Not Resolved]
  - Memory impairment [Unknown]
  - Disease progression [Fatal]
  - Dyspepsia [Unknown]
  - Bowel movement irregularity [Unknown]

NARRATIVE: CASE EVENT DATE: 2011
